FAERS Safety Report 18997555 (Version 1)
Quarter: 2021Q1

REPORT INFORMATION
  Report Type: Spontaneous
  Country: GB (occurrence: GB)
  Receive Date: 20210311
  Receipt Date: 20210311
  Transmission Date: 20210420
  Serious: Yes (Other)
  Sender: FDA-Public Use
  Company Number: GB-SA-2021SA082551

PATIENT
  Age: 34 Year
  Sex: Female
  Weight: 54 kg

DRUGS (6)
  1. PROTOPIC [Concomitant]
     Active Substance: TACROLIMUS
     Indication: ILL-DEFINED DISORDER
  2. EUMOVATE [Concomitant]
     Active Substance: CLOBETASONE BUTYRATE
     Indication: ILL-DEFINED DISORDER
  3. DUPILUMAB [Suspect]
     Active Substance: DUPILUMAB
     Indication: DERMATITIS ATOPIC
     Dosage: 300 MG, QOW
     Route: 058
     Dates: start: 20200802
  4. ELOCON [Concomitant]
     Active Substance: MOMETASONE FUROATE
     Indication: ILL-DEFINED DISORDER
  5. HYLO TEAR [Concomitant]
     Indication: ILL-DEFINED DISORDER
  6. LORATADIN [Concomitant]
     Active Substance: LORATADINE
     Indication: ILL-DEFINED DISORDER

REACTIONS (1)
  - Abortion of ectopic pregnancy [Recovered/Resolved]

NARRATIVE: CASE EVENT DATE: 20210210
